FAERS Safety Report 23014624 (Version 1)
Quarter: 2023Q4

REPORT INFORMATION
  Report Type: Spontaneous
  Country: US (occurrence: US)
  Receive Date: 20231002
  Receipt Date: 20231002
  Transmission Date: 20240110
  Serious: Yes (Other)
  Sender: FDA-Public Use
  Company Number: US-BAYER-2023A082772

PATIENT
  Age: 34 Year
  Sex: Female
  Weight: 63.6 kg

DRUGS (1)
  1. ASPIRIN [Suspect]
     Active Substance: ASPIRIN
     Indication: Pre-eclampsia
     Dosage: 81 MG

REACTIONS (3)
  - Off label use [None]
  - Maternal exposure during pregnancy [None]
  - Premature delivery [None]
